FAERS Safety Report 18975134 (Version 2)
Quarter: 2021Q1

REPORT INFORMATION
  Report Type: Spontaneous
  Country: DE (occurrence: DE)
  Receive Date: 20210305
  Receipt Date: 20210312
  Transmission Date: 20210420
  Serious: Yes (Other)
  Sender: FDA-Public Use
  Company Number: NVSC2021DE047681

PATIENT
  Sex: Female

DRUGS (1)
  1. CETIRIZIN HEXAL BEI ALLERGIEN [Suspect]
     Active Substance: CETIRIZINE HYDROCHLORIDE
     Indication: SEASONAL ALLERGY
     Dosage: UNK, QD  (1/2 ?1 TABLET AS NEEDED)
     Route: 065

REACTIONS (2)
  - Drug dependence [Unknown]
  - Dyspnoea [Unknown]
